FAERS Safety Report 16157877 (Version 4)
Quarter: 2019Q2

REPORT INFORMATION
  Report Type: Spontaneous
  Country: JP (occurrence: JP)
  Receive Date: 20190404
  Receipt Date: 20190426
  Transmission Date: 20190711
  Serious: Yes (Other)
  Sender: FDA-Public Use
  Company Number: JP-PFIZER INC-2019146206

PATIENT
  Age: 76 Year
  Sex: Male
  Weight: 56 kg

DRUGS (2)
  1. MEROPENEM. [Suspect]
     Active Substance: MEROPENEM
     Indication: PNEUMONIA ASPIRATION
     Dosage: UNK
     Route: 041
  2. AMIKACIN. [Concomitant]
     Active Substance: AMIKACIN
     Indication: PNEUMONIA ASPIRATION
     Dosage: UNK

REACTIONS (3)
  - Renal impairment [Unknown]
  - Metabolic acidosis [Unknown]
  - Drug resistance [Unknown]
